FAERS Safety Report 4789535-X (Version None)
Quarter: 2005Q4

REPORT INFORMATION
  Report Type: 
  Country: None (occurrence: None)
  Receive Date: 20051005
  Receipt Date: 20051005
  Transmission Date: 20060501
  Serious: Yes (Life-Threatening, Hospitalization)
  Sender: FDA-Public Use
  Company Number: None

PATIENT
  Age: 56 Year
  Sex: Female

DRUGS (15)
  1. LEVOTHYROXINE [Suspect]
     Indication: HYPOTHYROIDISM
     Dosage: 25 MCG PO QD
     Route: 048
     Dates: start: 20050217, end: 20050404
  2. IMDUR [Concomitant]
  3. PREDNISONE [Concomitant]
  4. PLAVIX [Concomitant]
  5. REGLAN [Concomitant]
  6. TOPROL-XL [Concomitant]
  7. PROGRAF [Concomitant]
  8. PROCARDIA XL [Concomitant]
  9. FESO4 [Concomitant]
  10. ZOCOR [Concomitant]
  11. PREVACID [Concomitant]
  12. ASPIRIN [Concomitant]
  13. DOXAZOSIN [Concomitant]
  14. PREMPRO [Concomitant]
  15. HUMULIN [Concomitant]

REACTIONS (8)
  - BLOOD THYROID STIMULATING HORMONE INCREASED [None]
  - CHILLS [None]
  - DRUG DISPENSING ERROR [None]
  - FATIGUE [None]
  - FEELING COLD [None]
  - FREE THYROXINE INDEX INCREASED [None]
  - INCORRECT DOSE ADMINISTERED [None]
  - PERICARDIAL EFFUSION [None]
